FAERS Safety Report 23440492 (Version 2)
Quarter: 2024Q1

REPORT INFORMATION
  Report Type: Report from Study
  Country: CA (occurrence: CA)
  Receive Date: 20240125
  Receipt Date: 20240210
  Transmission Date: 20240409
  Serious: Yes (Death)
  Sender: FDA-Public Use
  Company Number: CA-ABBVIE-5604386

PATIENT
  Age: 86 Year
  Sex: Female

DRUGS (1)
  1. SKYRIZI [Suspect]
     Active Substance: RISANKIZUMAB-RZAA
     Indication: Crohn^s disease
     Dosage: FREQUENCY TEXT: AT WEEK 12 AND EVERY 8 WEEKS AFTER
     Route: 058
     Dates: start: 20230608

REACTIONS (1)
  - Death [Fatal]

NARRATIVE: CASE EVENT DATE: 20240117
